FAERS Safety Report 5622069-9 (Version None)
Quarter: 2008Q1

REPORT INFORMATION
  Report Type: 
  Country: None (occurrence: None)
  Receive Date: 20080206
  Receipt Date: 20080125
  Transmission Date: 20080703
  Serious: Yes (Other)
  Sender: FDA-Public Use
  Company Number: 2008AP000273

PATIENT
  Age: 21 Year
  Sex: Female

DRUGS (3)
  1. PAROXETINE HCL [Suspect]
     Indication: DEPRESSION
     Dosage: 20 MG; QD PO, ;  QD, 0.5 ML; SYR; PO;
     Route: 048
     Dates: start: 20020625
  2. AMITRIPTYLINE HCL [Concomitant]
  3. TRAZODONE HCL [Concomitant]

REACTIONS (8)
  - ANXIETY [None]
  - DRUG WITHDRAWAL SYNDROME [None]
  - FEAR [None]
  - GASTROINTESTINAL DISORDER [None]
  - HALLUCINATION [None]
  - MOOD SWINGS [None]
  - NIGHTMARE [None]
  - PSYCHIATRIC SYMPTOM [None]
